FAERS Safety Report 5804225-X (Version None)
Quarter: 2008Q3

REPORT INFORMATION
  Report Type: 
  Country: None (occurrence: None)
  Receive Date: 20080709
  Receipt Date: 20080625
  Transmission Date: 20090109
  Serious: Yes (Hospitalization)
  Sender: FDA-Public Use
  Company Number: US-BAYER-US-2007-038956

PATIENT
  Age: 54 Year
  Sex: Female

DRUGS (4)
  1. BETASERON [Suspect]
     Indication: SECONDARY PROGRESSIVE MULTIPLE SCLEROSIS
     Dosage: TOTAL DAILY DOSE: 8 MIU
     Route: 058
     Dates: start: 20040201, end: 20060503
  2. BACLOFEN [Concomitant]
     Indication: MUSCLE SPASTICITY
     Dosage: TOTAL DAILY DOSE: 30 MG
     Route: 048
     Dates: start: 19970101
  3. CLONAZEPAM [Concomitant]
     Indication: PERIODIC LIMB MOVEMENT DISORDER
     Dosage: TOTAL DAILY DOSE: 0.5 MG
     Route: 048
     Dates: start: 20030101
  4. SOLU-MEDROL [Concomitant]
     Dosage: AS USED: 1 G
     Route: 042
     Dates: start: 20060201

REACTIONS (1)
  - DRUG SPECIFIC ANTIBODY PRESENT [None]
